FAERS Safety Report 20643349 (Version 1)
Quarter: 2022Q1

REPORT INFORMATION
  Report Type: Spontaneous
  Country: FR (occurrence: FR)
  Receive Date: 20220328
  Receipt Date: 20220328
  Transmission Date: 20220423
  Serious: Yes (Hospitalization)
  Sender: FDA-Public Use
  Company Number: None

PATIENT
  Age: 76 Year
  Sex: Female
  Weight: 120 kg

DRUGS (29)
  1. BISOPROLOL FUMARATE [Suspect]
     Active Substance: BISOPROLOL FUMARATE
     Indication: Arrhythmia
     Dosage: 1.25 MILLIGRAM, QD
     Route: 048
     Dates: start: 2021, end: 20220119
  2. PREGABALIN [Concomitant]
     Active Substance: PREGABALIN
     Indication: Neuropathy peripheral
     Dosage: 75 MILLIGRAM, BID
     Route: 048
  3. POTASSIUM CHLORIDE [Concomitant]
     Active Substance: POTASSIUM CHLORIDE
     Indication: Hypokalaemia
     Dosage: 1000 INTERNATIONAL UNIT, BID
     Route: 048
     Dates: end: 20211210
  4. POTASSIUM CHLORIDE [Concomitant]
     Active Substance: POTASSIUM CHLORIDE
     Dosage: 1000 INTERNATIONAL UNIT, Q6H
     Route: 048
     Dates: start: 20211221, end: 20211224
  5. POTASSIUM CHLORIDE [Concomitant]
     Active Substance: POTASSIUM CHLORIDE
     Dosage: 1000 INTERNATIONAL UNIT, Q8H
     Route: 048
     Dates: start: 20211224, end: 20220110
  6. POTASSIUM CHLORIDE [Concomitant]
     Active Substance: POTASSIUM CHLORIDE
     Dosage: 1000 INTERNATIONAL UNIT, Q8H
     Route: 048
     Dates: start: 20220110
  7. FLUORESCEIN SODIUM [Concomitant]
     Active Substance: FLUORESCEIN SODIUM
     Indication: Product used for unknown indication
     Dosage: 1 DOSAGE FORM, QD
     Dates: start: 20211220, end: 20211223
  8. LOVENOX [Concomitant]
     Active Substance: ENOXAPARIN SODIUM
     Indication: Thrombosis prophylaxis
     Dosage: 4000 INTERNATIONAL UNIT, BID
     Route: 058
  9. PRISTINAMYCIN [Concomitant]
     Active Substance: PRISTINAMYCIN
     Indication: Product used for unknown indication
     Dosage: 1000 INTERNATIONAL UNIT, BID
     Route: 048
     Dates: start: 20211217, end: 20211228
  10. BIFONAZOLE [Concomitant]
     Active Substance: BIFONAZOLE
     Indication: Fungal skin infection
     Dosage: 1 DOSAGE FORM, Q8H
     Route: 003
     Dates: start: 20211223, end: 20220110
  11. FUROSEMIDE [Concomitant]
     Active Substance: FUROSEMIDE
     Indication: Hypertension
     Dosage: 40 MILLIGRAM, QD
     Route: 048
  12. BETAMETHASONE VALERATE [Concomitant]
     Active Substance: BETAMETHASONE VALERATE
     Indication: Psoriasis
     Dosage: 1 DOSAGE FORM, QD
     Route: 003
     Dates: start: 20211116, end: 20220104
  13. BETAMETHASONE VALERATE [Concomitant]
     Active Substance: BETAMETHASONE VALERATE
     Dosage: 1 DOSAGE FORM, BID
     Route: 003
     Dates: start: 20220104, end: 20220110
  14. BETAMETHASONE DIPROPIONATE [Concomitant]
     Active Substance: BETAMETHASONE DIPROPIONATE
     Indication: Psoriasis
     Dosage: 1 DOSAGE FORM, QD
     Route: 003
     Dates: start: 20211116, end: 20211118
  15. DOMPERIDONE [Concomitant]
     Active Substance: DOMPERIDONE
     Indication: Vomiting
     Dosage: 10 MILLIGRAM, Q8H
     Route: 048
     Dates: start: 20211217, end: 20211220
  16. OFLOXACIN [Concomitant]
     Active Substance: OFLOXACIN
     Indication: Urinary tract infection bacterial
     Dosage: 200 INTERNATIONAL UNIT, BID
     Route: 048
     Dates: start: 20211117, end: 20211124
  17. Previscan [Concomitant]
     Indication: Arrhythmia
     Dosage: 20 MILLIGRAM, QD
     Route: 048
     Dates: start: 20211118, end: 20211121
  18. Previscan [Concomitant]
     Dosage: 15 MILLIGRAM, QD
     Route: 048
     Dates: start: 20211121, end: 20211126
  19. Previscan [Concomitant]
     Dosage: 10 MILLIGRAM, QD
     Route: 048
     Dates: start: 20211128, end: 20211210
  20. Previscan [Concomitant]
     Dosage: 10 MILLIGRAM, QD
     Route: 048
     Dates: start: 20211128, end: 20211210
  21. Previscan [Concomitant]
     Dosage: 5 MILLIGRAM, QD
     Route: 048
     Dates: start: 20211211, end: 20211220
  22. Previscan [Concomitant]
     Dosage: 10 MILLIGRAM, QD
     Route: 048
     Dates: start: 20211220
  23. ECONAZOLE [Concomitant]
     Active Substance: ECONAZOLE
     Indication: Fungal skin infection
     Dosage: 1 DOSAGE FORM, Q6H
     Route: 003
     Dates: start: 20211125, end: 20211223
  24. PERINDOPRIL [Concomitant]
     Active Substance: PERINDOPRIL
     Indication: Hypertension
     Dosage: 4 MILLIGRAM, QD
     Route: 048
     Dates: end: 20211213
  25. PERINDOPRIL [Concomitant]
     Active Substance: PERINDOPRIL
     Dosage: 2 MILLIGRAM, QD
     Route: 048
     Dates: start: 20211214, end: 20220111
  26. DIPROSONE [Concomitant]
     Active Substance: BETAMETHASONE DIPROPIONATE
     Indication: Psoriasis
     Dosage: 1 DOSAGE FORM, Q8H
     Route: 003
     Dates: start: 20211216, end: 20211220
  27. AMIODARONE [Concomitant]
     Active Substance: AMIODARONE
     Indication: Arrhythmia
     Dosage: 200 MILLIGRAM, QD
     Route: 048
  28. FUNGIZONE [Concomitant]
     Active Substance: AMPHOTERICIN B
     Indication: Oral fungal infection
     Dosage: 2 DOSAGE FORM, Q8H
     Route: 049
     Dates: start: 20211129, end: 20211215
  29. PANTOPRAZOLE SODIUM [Concomitant]
     Active Substance: PANTOPRAZOLE SODIUM
     Indication: Gastrointestinal disorder prophylaxis
     Dosage: 40 MILLIGRAM, QD
     Route: 048

REACTIONS (1)
  - Toxic skin eruption [Recovered/Resolved]

NARRATIVE: CASE EVENT DATE: 20220101
